FAERS Safety Report 13228995 (Version 8)
Quarter: 2017Q3

REPORT INFORMATION
  Report Type: Report from Study
  Country: CA (occurrence: CA)
  Receive Date: 20170213
  Receipt Date: 20170918
  Transmission Date: 20171127
  Serious: Yes (Other)
  Sender: FDA-Public Use
  Company Number: CA-ROCHE-1884275

PATIENT
  Age: 43 Year
  Sex: Male

DRUGS (9)
  1. ACTEMRA [Suspect]
     Active Substance: TOCILIZUMAB
     Dosage: 4TH INFUSION WAS RECEIVED ON 24/AUG/2017.
     Route: 042
     Dates: start: 20170321
  2. RAMIPRIL. [Concomitant]
     Active Substance: RAMIPRIL
  3. SULPHASALAZINE [Concomitant]
     Active Substance: SULFASALAZINE
  4. ACTEMRA [Suspect]
     Active Substance: TOCILIZUMAB
     Indication: RHEUMATOID ARTHRITIS
     Route: 058
     Dates: start: 20170130
  5. METHOTREXATE. [Concomitant]
     Active Substance: METHOTREXATE
  6. ACTEMRA [Suspect]
     Active Substance: TOCILIZUMAB
     Indication: RHEUMATOID ARTHRITIS
     Route: 042
     Dates: start: 20170123, end: 20170123
  7. ATENOLOL. [Concomitant]
     Active Substance: ATENOLOL
  8. PREDNISONE. [Concomitant]
     Active Substance: PREDNISONE
  9. PANTOPRAZOLE [Concomitant]
     Active Substance: PANTOPRAZOLE

REACTIONS (7)
  - Anxiety [Recovered/Resolved]
  - Drug hypersensitivity [Not Recovered/Not Resolved]
  - Dermatitis contact [Not Recovered/Not Resolved]
  - Oxygen saturation decreased [Unknown]
  - Oral herpes [Unknown]
  - Drug ineffective [Unknown]
  - Arthralgia [Not Recovered/Not Resolved]

NARRATIVE: CASE EVENT DATE: 20170425
